FAERS Safety Report 9436980 (Version 1)
Quarter: 2013Q3

REPORT INFORMATION
  Report Type: Spontaneous
  Country: FR (occurrence: FR)
  Receive Date: 20130802
  Receipt Date: 20130802
  Transmission Date: 20140515
  Serious: Yes (Life-Threatening, Hospitalization)
  Sender: FDA-Public Use
  Company Number: FR-SANOFI-AVENTIS-2013SA070295

PATIENT
  Age: 66 Year
  Sex: Male
  Weight: 76 kg

DRUGS (15)
  1. JEVTANA [Suspect]
     Indication: PROSTATE CANCER METASTATIC
     Dosage: SIXTH COURSE 23 MG MG/M3
     Route: 042
     Dates: start: 20130626, end: 20130626
  2. JEVTANA [Suspect]
     Indication: PROSTATE CANCER METASTATIC
     Dosage: 25MG/M2
     Route: 042
  3. JEVTANA [Suspect]
     Indication: PROSTATE CANCER METASTATIC
     Dosage: 12MG/M2
     Route: 042
  4. JEVTANA [Suspect]
     Indication: PROSTATE CANCER METASTATIC
     Dosage: 15MG/M2
     Route: 042
  5. ZARZIO [Concomitant]
     Indication: PROPHYLAXIS
     Dosage: DOSE:30 MILLIUNIT(S)
     Route: 058
     Dates: start: 20130630, end: 20130706
  6. OXYCONTIN [Concomitant]
     Indication: BONE PAIN
     Route: 048
     Dates: start: 201302
  7. OXYNORM [Concomitant]
     Indication: BONE PAIN
     Route: 048
     Dates: start: 201302
  8. VERSATIS [Concomitant]
     Indication: BONE PAIN
     Dosage: ROUTE: LOCAL
     Dates: start: 201302
  9. AMAREL [Concomitant]
     Indication: DIABETES MELLITUS
     Route: 048
  10. LANTUS [Concomitant]
     Indication: DIABETES MELLITUS
  11. METFORMIN [Concomitant]
     Indication: DIABETES MELLITUS
  12. COVERSYL [Concomitant]
     Route: 048
  13. KARDEGIC [Concomitant]
     Route: 048
  14. FLECAINE [Concomitant]
     Route: 048
  15. LODOZ [Concomitant]
     Route: 048

REACTIONS (3)
  - Cell death [Recovered/Resolved]
  - Septic shock [Recovered/Resolved]
  - Febrile neutropenia [Recovered/Resolved]
